FAERS Safety Report 5378464-9 (Version None)
Quarter: 2007Q3

REPORT INFORMATION
  Report Type: 
  Country: None (occurrence: None)
  Receive Date: 20070705
  Receipt Date: 20070629
  Transmission Date: 20080115
  Serious: Yes (Hospitalization, Other)
  Sender: FDA-Public Use
  Company Number: PL-AVENTIS-200713215EU

PATIENT
  Age: 47 Year
  Sex: Male

DRUGS (51)
  1. ENOXAPARIN SODIUM [Suspect]
     Route: 058
     Dates: start: 20060725, end: 20060803
  2. METOTREXATE [Concomitant]
     Dates: start: 20060201
  3. ENARENAL [Concomitant]
     Dates: start: 20060201
  4. MYDOCALM                           /00293001/ [Concomitant]
     Dates: start: 20060201
  5. TERTENSIF [Concomitant]
     Dates: start: 20060201
  6. MAJAMIL [Concomitant]
     Dates: start: 20060201
  7. MAJAMIL [Concomitant]
     Dates: start: 20060720, end: 20060721
  8. MAJAMIL [Concomitant]
     Dates: start: 20060723, end: 20060723
  9. MAJAMIL [Concomitant]
     Dates: start: 20060201
  10. MAJAMIL [Concomitant]
     Dates: start: 20060720, end: 20060721
  11. MAJAMIL [Concomitant]
     Dates: start: 20060723, end: 20060723
  12. ACIDUM FOLICUM [Concomitant]
     Dates: start: 20060201
  13. AMLOZEK                            /00972401/ [Concomitant]
     Dates: start: 20060725
  14. POLFILIN [Concomitant]
     Dates: start: 20060729, end: 20060805
  15. DOLARGAN [Concomitant]
     Dates: start: 20060726, end: 20060726
  16. KETONAL                            /00321701/ [Concomitant]
     Dates: start: 20060717, end: 20060717
  17. KETONAL                            /00321701/ [Concomitant]
     Dates: start: 20060718, end: 20060718
  18. KETONAL                            /00321701/ [Concomitant]
     Dates: start: 20060722, end: 20060722
  19. KETONAL                            /00321701/ [Concomitant]
     Dates: start: 20060726, end: 20060726
  20. KETONAL                            /00321701/ [Concomitant]
     Dates: start: 20060728, end: 20060728
  21. KETONAL                            /00321701/ [Concomitant]
     Dates: start: 20060729, end: 20060729
  22. KETONAL                            /00321701/ [Concomitant]
     Dates: start: 20060730, end: 20060730
  23. KETONAL                            /00321701/ [Concomitant]
     Dates: start: 20060802, end: 20060803
  24. KETONAL                            /00321701/ [Concomitant]
     Dates: start: 20060804, end: 20060804
  25. KETONAL                            /00321701/ [Concomitant]
     Dates: start: 20060717, end: 20060717
  26. KETONAL                            /00321701/ [Concomitant]
     Dates: start: 20060718, end: 20060718
  27. KETONAL                            /00321701/ [Concomitant]
     Dates: start: 20060722, end: 20060722
  28. KETONAL                            /00321701/ [Concomitant]
     Dates: start: 20060726, end: 20060726
  29. KETONAL                            /00321701/ [Concomitant]
     Dates: start: 20060728, end: 20060728
  30. KETONAL                            /00321701/ [Concomitant]
     Dates: start: 20060729, end: 20060729
  31. KETONAL                            /00321701/ [Concomitant]
     Dates: start: 20060730, end: 20060730
  32. KETONAL                            /00321701/ [Concomitant]
     Dates: start: 20060802, end: 20060803
  33. KETONAL                            /00321701/ [Concomitant]
     Dates: start: 20060804, end: 20060804
  34. PYRALGIN                           /00039501/ [Concomitant]
     Dates: start: 20060726, end: 20060726
  35. PYRALGIN                           /00039501/ [Concomitant]
     Dates: start: 20060729, end: 20060729
  36. TRAMADOL HCL [Concomitant]
     Dates: start: 20060728, end: 20060728
  37. TRAMADOL HCL [Concomitant]
     Dates: start: 20060731, end: 20060731
  38. HYDROXYZINUM [Concomitant]
     Dates: start: 20060725, end: 20060725
  39. HYDROXYZINUM [Concomitant]
     Dates: start: 20060729, end: 20060729
  40. HYDROXYZINUM [Concomitant]
     Dates: start: 20060731, end: 20060731
  41. HYDROXYZINUM [Concomitant]
     Dates: start: 20060804, end: 20060804
  42. CODIPAR (PARACETAMOL) [Concomitant]
     Dates: start: 20060803, end: 20060803
  43. FENTANYL [Concomitant]
     Dates: start: 20060726, end: 20060726
  44. BENZODIAZEPINE DERIVATIVES [Concomitant]
     Indication: PREMEDICATION
     Dates: start: 20060726, end: 20060726
  45. THIOPENTAL SODIUM [Concomitant]
     Dates: start: 20060726, end: 20060726
  46. NORCURON [Concomitant]
     Dates: start: 20060726, end: 20060726
  47. SCOLINE [Concomitant]
     Dates: start: 20060726, end: 20060726
  48. ATROPINE SULFATE [Concomitant]
     Dates: start: 20060726, end: 20060726
  49. SEVOFLURAN [Concomitant]
     Dates: start: 20060726, end: 20060726
  50. KEFZOL [Concomitant]
     Dates: start: 20060726, end: 20060728
  51. FRAXIPARINA [Concomitant]
     Dates: start: 20060804

REACTIONS (2)
  - JAUNDICE [None]
  - LIVER FUNCTION TEST ABNORMAL [None]
